FAERS Safety Report 8457151-4 (Version None)
Quarter: 2012Q2

REPORT INFORMATION
  Report Type: 
  Country: None (occurrence: None)
  Receive Date: 20120614
  Receipt Date: 20120529
  Transmission Date: 20120825
  Serious: Yes (Hospitalization)
  Sender: FDA-Public Use
  Company Number: 2012NA000055

PATIENT
  Age: 22 Year
  Sex: Male

DRUGS (8)
  1. ESOMEPRAZOLE [Concomitant]
  2. VITAMIN B COMPLEX WITH IRON [Concomitant]
  3. CEFTRIAXONE [Concomitant]
  4. METRONIDAZOLE [Concomitant]
  5. ACETAMINOPHEN [Concomitant]
  6. DICLOFENAC SODIUM [Suspect]
     Indication: MUMPS
     Dosage: 100 MG;BID;PO
     Route: 048
  7. CEFIXIME [Concomitant]
  8. CIPROFLOXACIN [Concomitant]

REACTIONS (6)
  - VOMITING [None]
  - PERITONITIS [None]
  - HEART RATE INCREASED [None]
  - CONSTIPATION [None]
  - INFLAMMATORY BOWEL DISEASE [None]
  - RESPIRATORY RATE INCREASED [None]
